FAERS Safety Report 8100893-0 (Version None)
Quarter: 2012Q1

REPORT INFORMATION
  Report Type: 
  Country: None (occurrence: None)
  Receive Date: 20120129
  Receipt Date: 20110912
  Transmission Date: 20120608
  Serious: No
  Sender: FDA-Public Use
  Company Number: US-ABBOTT-11P-163-0853181-00

PATIENT
  Sex: Male

DRUGS (2)
  1. MERCAPTOPURINE [Concomitant]
     Indication: PRODUCT USED FOR UNKNOWN INDICATION
  2. HUMIRA [Suspect]
     Indication: PRODUCT USED FOR UNKNOWN INDICATION

REACTIONS (8)
  - FEELING HOT [None]
  - NECK PAIN [None]
  - SENSATION OF PRESSURE [None]
  - MUSCLE STRAIN [None]
  - FEELING ABNORMAL [None]
  - MUSCULOSKELETAL STIFFNESS [None]
  - GASTROINTESTINAL DISORDER [None]
  - LYMPHADENOPATHY [None]
